FAERS Safety Report 25176935 (Version 1)
Quarter: 2025Q2

REPORT INFORMATION
  Report Type: Spontaneous
  Country: US (occurrence: US)
  Receive Date: 20250409
  Receipt Date: 20250409
  Transmission Date: 20250717
  Serious: No
  Sender: PHARMACOSMOS
  Company Number: US-NEBO-691588

PATIENT
  Age: 77 Year

DRUGS (1)
  1. MONOFERRIC [Suspect]
     Active Substance: FERRIC DERISOMALTOSE
     Indication: Iron deficiency anaemia
     Dates: start: 20250212, end: 20250212

REACTIONS (1)
  - Drug effect less than expected [Unknown]
